FAERS Safety Report 9643841 (Version 2)
Quarter: 2014Q2

REPORT INFORMATION
  Report Type: Spontaneous
  Country: US (occurrence: US)
  Receive Date: 20131024
  Receipt Date: 20140610
  Transmission Date: 20141212
  Serious: Yes (Death, Other)
  Sender: FDA-Public Use
  Company Number: US-INCYTE CORPORATION-2013IN002506

PATIENT
  Age: 56 Year
  Sex: Female

DRUGS (2)
  1. JAKAFI [Suspect]
     Indication: POLYCYTHAEMIA VERA
     Dosage: UNK
     Route: 048
  2. JAKAFI [Suspect]
     Indication: MYELOFIBROSIS

REACTIONS (3)
  - Infection [Fatal]
  - Acute myeloid leukaemia [Not Recovered/Not Resolved]
  - Malignant transformation [None]
